FAERS Safety Report 11806804 (Version 2)
Quarter: 2015Q4

REPORT INFORMATION
  Report Type: Spontaneous
  Country: US (occurrence: US)
  Receive Date: 20151207
  Receipt Date: 20151221
  Transmission Date: 20160305
  Serious: Yes (Hospitalization, Other)
  Sender: FDA-Public Use
  Company Number: US-SMITH AND NEPHEW, INC-2015SMT00570

PATIENT
  Age: 58 Year
  Sex: Male

DRUGS (1)
  1. REGRANEX [Suspect]
     Active Substance: BECAPLERMIN
     Indication: SKIN ULCER
     Dosage: UNK, 1X/DAY
     Dates: start: 201511, end: 20151114

REACTIONS (4)
  - Osteomyelitis [Recovered/Resolved with Sequelae]
  - Off label use [Unknown]
  - Vascular occlusion [Unknown]
  - Amputation [Recovered/Resolved with Sequelae]

NARRATIVE: CASE EVENT DATE: 201511
